FAERS Safety Report 20673500 (Version 1)
Quarter: 2022Q2

REPORT INFORMATION
  Report Type: Spontaneous
  Country: US (occurrence: None)
  Receive Date: 20220403
  Receipt Date: 20220403
  Transmission Date: 20220720
  Serious: Yes (Life-Threatening)
  Sender: FDA-Public Use
  Company Number: None

PATIENT
  Age: 48 Year
  Sex: Female
  Weight: 65 kg

DRUGS (1)
  1. LOSARTAN POTASSIUM [Suspect]
     Active Substance: LOSARTAN POTASSIUM
     Indication: Hypertension
     Dosage: FREQUENCY : DAILY;?
     Route: 048
     Dates: start: 20211122, end: 20211129

REACTIONS (6)
  - Urticaria [None]
  - Paraesthesia oral [None]
  - Paraesthesia oral [None]
  - Swelling of eyelid [None]
  - Therapy cessation [None]
  - Angioedema [None]

NARRATIVE: CASE EVENT DATE: 20211129
